FAERS Safety Report 17404748 (Version 1)
Quarter: 2020Q1

REPORT INFORMATION
  Report Type: Spontaneous
  Country: US (occurrence: US)
  Receive Date: 20200211
  Receipt Date: 20200211
  Transmission Date: 20200409
  Serious: No
  Sender: FDA-Public Use
  Company Number: US-PURDUE-USA-2019-0148781

PATIENT
  Sex: Male

DRUGS (1)
  1. BUPRENORPHINE TRANSDERMAL PATCH [Suspect]
     Active Substance: BUPRENORPHINE
     Indication: PAIN
     Dosage: 20 MCG/HR, WEEKLY
     Route: 062
     Dates: start: 2019, end: 201909

REACTIONS (6)
  - Application site erythema [Unknown]
  - Application site pruritus [Unknown]
  - Depression [Not Recovered/Not Resolved]
  - Application site burn [Unknown]
  - Anxiety [Not Recovered/Not Resolved]
  - Confusional state [Unknown]
